FAERS Safety Report 7461856-1 (Version None)
Quarter: 2011Q2

REPORT INFORMATION
  Report Type: 
  Country: None (occurrence: None)
  Receive Date: 20110506
  Receipt Date: 20110503
  Transmission Date: 20111010
  Serious: Yes (Hospitalization, Other)
  Sender: FDA-Public Use
  Company Number: US-PFIZER INC-2011044458

PATIENT
  Sex: Female

DRUGS (5)
  1. CHANTIX [Suspect]
     Indication: SMOKING CESSATION THERAPY
     Dosage: STARTER PACK THEN 1 MG
     Route: 048
     Dates: start: 20061021, end: 20081112
  2. HUMALOG [Concomitant]
     Indication: TYPE 1 DIABETES MELLITUS
     Dosage: 15 TO 20 UNITS DAILY SLIDING SCALE
     Dates: start: 19810101
  3. FAMOTIDINE [Concomitant]
     Indication: IMPAIRED GASTRIC EMPTYING
  4. FAMOTIDINE [Concomitant]
     Indication: GASTROOESOPHAGEAL REFLUX DISEASE
     Dosage: 20 MG, 2X/DAY
     Dates: start: 19970101
  5. LANTUS [Concomitant]
     Indication: TYPE 1 DIABETES MELLITUS
     Dosage: 20 UNITS MORNING AND EVENING
     Dates: start: 19810101

REACTIONS (8)
  - SUICIDE ATTEMPT [None]
  - PARANOIA [None]
  - SUICIDAL BEHAVIOUR [None]
  - ANGER [None]
  - DEPRESSION [None]
  - PSYCHOTIC DISORDER [None]
  - ANXIETY [None]
  - CONVULSION [None]
